FAERS Safety Report 9354010 (Version 1)
Quarter: 2013Q2

REPORT INFORMATION
  Report Type: Spontaneous
  Country: AU (occurrence: AU)
  Receive Date: 20130618
  Receipt Date: 20130618
  Transmission Date: 20140414
  Serious: Yes (Death, Hospitalization, Other)
  Sender: FDA-Public Use
  Company Number: AU-B.I. PHARMACEUTICALS,INC./RIDGEFIELD-2013-AU-00731AU

PATIENT
  Age: 78 Year
  Sex: Male

DRUGS (5)
  1. PRADAXA [Suspect]
     Indication: CEREBROVASCULAR ACCIDENT PROPHYLAXIS
     Dates: start: 20110617
  2. PRADAXA [Suspect]
     Indication: ATRIAL FIBRILLATION
  3. PANTOPRAZOLE [Concomitant]
  4. DOMPERIDONE [Concomitant]
  5. BACLOFEN [Concomitant]

REACTIONS (4)
  - Death [Fatal]
  - Oesophageal carcinoma [Unknown]
  - Melaena [Unknown]
  - Anaemia [Unknown]
